FAERS Safety Report 8440195-6 (Version None)
Quarter: 2012Q2

REPORT INFORMATION
  Report Type: 
  Country: None (occurrence: None)
  Receive Date: 20120615
  Receipt Date: 20120604
  Transmission Date: 20120825
  Serious: Yes (Hospitalization)
  Sender: FDA-Public Use
  Company Number: FR-VERTEX PHARMACEUTICALS INC.-000000000000000855

PATIENT
  Sex: Female
  Weight: 70 kg

DRUGS (11)
  1. PEGASYS [Concomitant]
     Indication: HEPATITIS C
     Dosage: DOSAGE FORM: UNSPECIFIED
     Route: 065
     Dates: start: 20111005
  2. ASPIRIN [Concomitant]
     Indication: THROMBOSIS PROPHYLAXIS
     Dates: start: 20100111
  3. PLAVIX [Concomitant]
     Indication: THROMBOSIS PROPHYLAXIS
     Dates: start: 20100111
  4. RAMIPRIL [Concomitant]
     Indication: HYPERTENSION
     Dates: start: 20070625
  5. COPEGUS [Concomitant]
     Indication: HEPATITIS C
     Dosage: 400 TWICE A DAY + 200MG
     Dates: start: 20111005
  6. GLUCOPHAGE [Concomitant]
     Indication: TYPE 2 DIABETES MELLITUS
     Dates: start: 20110504
  7. TENORMIN [Concomitant]
     Indication: HYPERTENSION
     Dates: start: 19980902
  8. AMLODIPINE BESYLATE [Concomitant]
     Indication: HYPERTENSION
     Dates: start: 20060530
  9. ALDACTONE [Concomitant]
     Indication: HYPERTENSION
     Dates: start: 20070625
  10. INCIVO [Suspect]
     Indication: HEPATITIS C
     Dosage: DOSAGE FORM: TABLET
     Dates: start: 20111005
  11. ESIDRIX [Concomitant]
     Indication: HYPERTENSION
     Dates: start: 20090520

REACTIONS (2)
  - ANAEMIA [None]
  - THROMBOPHLEBITIS [None]
